FAERS Safety Report 7240896-1 (Version None)
Quarter: 2011Q1

REPORT INFORMATION
  Report Type: 
  Country: None (occurrence: None)
  Receive Date: 20110124
  Receipt Date: 20110111
  Transmission Date: 20110831
  Serious: Yes (Other)
  Sender: FDA-Public Use
  Company Number: PHHY2010CA83746

PATIENT
  Sex: Female

DRUGS (1)
  1. ACLASTA [Suspect]
     Dosage: 5 MG, UNK
     Route: 042
     Dates: start: 20091210

REACTIONS (15)
  - NERVOUS SYSTEM DISORDER [None]
  - PAIN [None]
  - BLINDNESS [None]
  - PAIN IN JAW [None]
  - DYSKINESIA [None]
  - ABDOMINAL PAIN UPPER [None]
  - HEADACHE [None]
  - NERVOUSNESS [None]
  - ABNORMAL FAECES [None]
  - GASTRIC ULCER [None]
  - MYALGIA [None]
  - ARTHRALGIA [None]
  - LOSS OF CONSCIOUSNESS [None]
  - TRISMUS [None]
  - BONE PAIN [None]
